FAERS Safety Report 7047654-1 (Version None)
Quarter: 2010Q4

REPORT INFORMATION
  Report Type: 
  Country: None (occurrence: None)
  Receive Date: 20101014
  Receipt Date: 20101014
  Transmission Date: 20110411
  Serious: Yes (Other)
  Sender: FDA-Public Use
  Company Number: None

PATIENT
  Sex: Female
  Weight: 105.5 kg

DRUGS (1)
  1. FENOFIBRATE [Suspect]
     Indication: BLOOD TRIGLYCERIDES INCREASED
     Dosage: 160 MG 2 PER DAY ORAL
     Route: 048
     Dates: start: 20100718, end: 20100722

REACTIONS (3)
  - NEUROPATHY PERIPHERAL [None]
  - PAIN [None]
  - SYNOVIAL CYST [None]
